FAERS Safety Report 6930705-X (Version None)
Quarter: 2010Q3

REPORT INFORMATION
  Report Type: 
  Country: None (occurrence: None)
  Receive Date: 20100813
  Receipt Date: 20100730
  Transmission Date: 20110219
  Serious: Yes (Other)
  Sender: FDA-Public Use
  Company Number: 201007AGG00940

PATIENT
  Sex: Male

DRUGS (1)
  1. TIROFIBAN HYDOCHLORIDE (AGGRASTAT (TIROFIBAN HCL)) [Suspect]
     Indication: MYOCARDIAL INFARCTION
     Dosage: (36ML/DAILY DURATION 30-60 MINUTES INTRAVENOUS (NOT OTHERWISE SPECIFIED))
     Route: 042
     Dates: start: 20100705, end: 20100705

REACTIONS (5)
  - DRUG ADMINISTRATION ERROR [None]
  - MULTI-ORGAN DISORDER [None]
  - PULMONARY HAEMORRHAGE [None]
  - SEPTIC SHOCK [None]
  - WRONG TECHNIQUE IN DRUG USAGE PROCESS [None]
